FAERS Safety Report 16506148 (Version 4)
Quarter: 2020Q4

REPORT INFORMATION
  Report Type: Report from Study
  Country: US (occurrence: US)
  Receive Date: 20190701
  Receipt Date: 20201229
  Transmission Date: 20210113
  Serious: No
  Sender: FDA-Public Use
  Company Number: US-CLOVIS ONCOLOGY-CLO-2019-000949

PATIENT
  Age: 54 Year
  Sex: Female

DRUGS (2)
  1. RUBRACA [Suspect]
     Active Substance: RUCAPARIB CAMSYLATE
     Indication: OVARIAN CANCER
     Dosage: 300 MG, QD
     Route: 048
     Dates: start: 20190513, end: 20190513
  2. RUBRACA [Suspect]
     Active Substance: RUCAPARIB CAMSYLATE
     Dosage: 600 MG, BID
     Route: 048
     Dates: start: 20190513

REACTIONS (9)
  - Product dose omission issue [Unknown]
  - Dizziness [Unknown]
  - Nausea [Unknown]
  - Fatigue [Not Recovered/Not Resolved]
  - Foreign body in throat [Unknown]
  - Throat irritation [Unknown]
  - Tinnitus [Unknown]
  - Taste disorder [Unknown]
  - Accidental underdose [Unknown]

NARRATIVE: CASE EVENT DATE: 2019
